FAERS Safety Report 7672871-7 (Version None)
Quarter: 2011Q3

REPORT INFORMATION
  Report Type: 
  Country: None (occurrence: None)
  Receive Date: 20110809
  Receipt Date: 20110603
  Transmission Date: 20111222
  Serious: Yes (Hospitalization)
  Sender: FDA-Public Use
  Company Number: PHHY2011JP47068

PATIENT
  Sex: Male

DRUGS (4)
  1. ADALAT [Concomitant]
  2. RASILEZ [Suspect]
     Indication: HYPERTENSION
     Route: 048
  3. ATELEC [Concomitant]
     Route: 048
  4. CANDESARTAN CILEXETIL [Concomitant]

REACTIONS (7)
  - BLOOD POTASSIUM INCREASED [None]
  - CONCOMITANT DISEASE AGGRAVATED [None]
  - GLOMERULONEPHRITIS RAPIDLY PROGRESSIVE [None]
  - RENAL IMPAIRMENT [None]
  - BRADYCARDIA [None]
  - HEPATIC FUNCTION ABNORMAL [None]
  - DIALYSIS [None]
